FAERS Safety Report 14485055 (Version 4)
Quarter: 2018Q2

REPORT INFORMATION
  Report Type: Spontaneous
  Country: US (occurrence: US)
  Receive Date: 20180205
  Receipt Date: 20180531
  Transmission Date: 20180711
  Serious: No
  Sender: FDA-Public Use
  Company Number: US-PFIZER INC-2018045887

PATIENT
  Age: 65 Year
  Sex: Male
  Weight: 87 kg

DRUGS (13)
  1. XELJANZ XR [Suspect]
     Active Substance: TOFACITINIB CITRATE
     Indication: PAIN IN EXTREMITY
     Dosage: 11 MG, ONCE DAILY
     Route: 048
     Dates: start: 201708
  2. ADDERALL [Concomitant]
     Active Substance: AMPHETAMINE ASPARTATE\AMPHETAMINE SULFATE\DEXTROAMPHETAMINE SACCHARATE\DEXTROAMPHETAMINE SULFATE
     Dosage: 50 MG, TWICE DAILY
     Dates: start: 201603
  3. CYMBALTA [Concomitant]
     Active Substance: DULOXETINE HYDROCHLORIDE
     Dosage: 30 MG, DAILY
     Dates: start: 201203
  4. XELJANZ XR [Suspect]
     Active Substance: TOFACITINIB CITRATE
     Indication: RHEUMATOID ARTHRITIS
     Dosage: 11 MG, ONCE DAILY
     Route: 048
  5. BUTRANS [Concomitant]
     Active Substance: BUPRENORPHINE
     Indication: PAIN
     Dosage: 50 UG, WEEKLY (50 UG PER HOUR, ONCE A WEEK)
     Dates: start: 201702
  6. LIPITOR [Concomitant]
     Active Substance: ATORVASTATIN CALCIUM
     Dosage: 20 MG, ONCE DAILY
     Dates: start: 201202
  7. XANAX [Concomitant]
     Active Substance: ALPRAZOLAM
     Dosage: 0.5 MG (HALF A MG), AS NEEDED (PER DAY)
     Dates: start: 201502
  8. NORVASC [Concomitant]
     Active Substance: AMLODIPINE BESYLATE
     Dosage: 5 MG, ONCE DAILY
     Dates: start: 201202
  9. VENTOLIN [Concomitant]
     Active Substance: ALBUTEROL SULFATE
     Dosage: UNK, AS NEEDED  (INHALER, 1 TO 2 PUFFS EVERY 4 HOURS AS NEEDED)
     Dates: start: 201712
  10. VISTARIL [Concomitant]
     Active Substance: HYDROXYZINE PAMOATE
     Dosage: 25 MG, THRICE DAILY
     Dates: start: 201506
  11. PANTOPRAZOLE [Concomitant]
     Active Substance: PANTOPRAZOLE
     Dosage: 40 MG, ONCE DAILY
     Dates: start: 201701
  12. CETIRIZINE [Concomitant]
     Active Substance: CETIRIZINE HYDROCHLORIDE
     Dosage: 10 MG, ONCE DAILY
     Dates: start: 201701
  13. COZAAR [Concomitant]
     Active Substance: LOSARTAN POTASSIUM
     Dosage: 100 MG, ONCE DAILY
     Dates: start: 201202

REACTIONS (1)
  - Asthma [Not Recovered/Not Resolved]

NARRATIVE: CASE EVENT DATE: 201712
